FAERS Safety Report 19183526 (Version 6)
Quarter: 2023Q4

REPORT INFORMATION
  Report Type: Other
  Country: CA (occurrence: CA)
  Receive Date: 20210427
  Receipt Date: 20231130
  Transmission Date: 20240110
  Serious: Yes (Other)
  Sender: FDA-Public Use
  Company Number: CA-APOTEX-2021AP010156

PATIENT
  Age: 9 Year
  Sex: Male

DRUGS (30)
  1. BUSULFAN [Suspect]
     Active Substance: BUSULFAN
     Indication: Acute myeloid leukaemia
     Dosage: UNK
     Route: 065
  2. FILGRASTIM [Suspect]
     Active Substance: FILGRASTIM
     Indication: Acute myeloid leukaemia
     Dosage: 5 MICROGRAM/SQ. METER, QD
     Route: 065
  3. CYCLOPHOSPHAMIDE [Suspect]
     Active Substance: CYCLOPHOSPHAMIDE
     Indication: Acute myeloid leukaemia
     Dosage: 2000 MILLIGRAM
     Route: 065
  4. CYTARABINE [Suspect]
     Active Substance: CYTARABINE
     Indication: Acute myeloid leukaemia
     Dosage: 100 MILLIGRAM/SQ. METER
     Route: 065
  5. CYTARABINE [Suspect]
     Active Substance: CYTARABINE
     Dosage: 2000 MILLIGRAM/SQ. METER, QD
     Route: 037
  6. CYTARABINE [Suspect]
     Active Substance: CYTARABINE
     Dosage: 1000 MILLIGRAM/SQ. METER
     Route: 065
  7. DAUNORUBICIN HYDROCHLORIDE [Suspect]
     Active Substance: DAUNORUBICIN HYDROCHLORIDE
     Indication: Acute myeloid leukaemia
     Dosage: 50 MILLIGRAM/SQ. METER
     Route: 065
  8. ETOPOSIDE [Suspect]
     Active Substance: ETOPOSIDE
     Indication: Acute myeloid leukaemia
     Dosage: 100 MILLIGRAM/SQ. METER
     Route: 065
  9. FLUDARABINE [Suspect]
     Active Substance: FLUDARABINE PHOSPHATE
     Indication: Acute myeloid leukaemia
     Dosage: 30 MILLIGRAM/SQ. METER, QD
     Route: 048
  10. FLUDARABINE [Suspect]
     Active Substance: FLUDARABINE PHOSPHATE
     Dosage: 30 MILLIGRAM/SQ. METER, QD
     Route: 065
  11. RYDAPT [Suspect]
     Active Substance: MIDOSTAURIN
     Indication: Acute myeloid leukaemia
     Dosage: 15 MILLIGRAM/SQ. METER, BID
     Route: 048
  12. RYDAPT [Suspect]
     Active Substance: MIDOSTAURIN
     Dosage: 30 MILLIGRAM/SQ. METER, QD
     Route: 048
  13. RYDAPT [Suspect]
     Active Substance: MIDOSTAURIN
     Dosage: 15 MILLIGRAM
     Route: 048
  14. RYDAPT [Suspect]
     Active Substance: MIDOSTAURIN
     Dosage: 30 MILLIGRAM
     Route: 048
  15. SORAFENIB [Suspect]
     Active Substance: SORAFENIB
     Indication: Acute myeloid leukaemia
     Dosage: 200 MILLIGRAM/SQ. METER, QD
     Route: 065
  16. SORAFENIB [Suspect]
     Active Substance: SORAFENIB
     Dosage: UNK
     Route: 005
  17. SORAFENIB [Suspect]
     Active Substance: SORAFENIB
     Dosage: UNK
     Route: 065
  18. SORAFENIB [Suspect]
     Active Substance: SORAFENIB
     Dosage: UNK
     Route: 065
  19. SORAFENIB [Suspect]
     Active Substance: SORAFENIB
     Dosage: 200 MILLIGRAM/SQ. METER
     Route: 065
  20. THYMOGLOBULIN [Suspect]
     Active Substance: LAPINE T-LYMPHOCYTE IMMUNE GLOBULIN
     Indication: Acute myeloid leukaemia
     Dosage: UNK
     Route: 042
  21. THYMOGLOBULIN [Suspect]
     Active Substance: LAPINE T-LYMPHOCYTE IMMUNE GLOBULIN
     Dosage: UNK
     Route: 065
  22. BUSULFEX [Suspect]
     Active Substance: BUSULFAN
     Indication: Acute myeloid leukaemia
     Dosage: UNK
     Route: 065
  23. MIDOSTAURIN [Suspect]
     Active Substance: MIDOSTAURIN
     Indication: Acute myeloid leukaemia
     Dosage: 15 MILLIGRAM
     Route: 048
  24. MIDOSTAURIN [Suspect]
     Active Substance: MIDOSTAURIN
     Dosage: 15 MILLIGRAM/SQ. METER, BID
     Route: 048
  25. MIDOSTAURIN [Suspect]
     Active Substance: MIDOSTAURIN
     Dosage: 30 MILLIGRAM/SQ. METER
     Route: 048
  26. NEXAVAR [Suspect]
     Active Substance: SORAFENIB
     Indication: Acute myeloid leukaemia
     Dosage: UNK
     Route: 065
  27. NEXAVAR [Suspect]
     Active Substance: SORAFENIB
     Dosage: 200 MILLIGRAM/SQ. METER, QD
     Route: 065
  28. CYTARABINE [Suspect]
     Active Substance: CYTARABINE
     Indication: Acute myeloid leukaemia
     Dosage: 1000 MILLIGRAM/SQ. METER
     Route: 037
  29. CYTARABINE [Suspect]
     Active Substance: CYTARABINE
     Dosage: 100 MILLIGRAM/SQ. METER
     Route: 065
  30. DAUNORUBICIN [Suspect]
     Active Substance: DAUNORUBICIN
     Indication: Acute myeloid leukaemia
     Dosage: UNK
     Route: 065

REACTIONS (7)
  - Skin toxicity [Recovered/Resolved with Sequelae]
  - Acute myeloid leukaemia recurrent [Recovered/Resolved with Sequelae]
  - Drug intolerance [Recovered/Resolved with Sequelae]
  - Bone marrow failure [Recovered/Resolved with Sequelae]
  - Lymphadenopathy [Recovered/Resolved with Sequelae]
  - Pancytopenia [Recovered/Resolved with Sequelae]
  - Myelosuppression [Recovered/Resolved with Sequelae]
